FAERS Safety Report 17544078 (Version 1)
Quarter: 2020Q1

REPORT INFORMATION
  Report Type: Spontaneous
  Country: US (occurrence: US)
  Receive Date: 20200316
  Receipt Date: 20200316
  Transmission Date: 20200409
  Serious: No
  Sender: FDA-Public Use
  Company Number: US-AUROBINDO-AUR-APL-2019-106298

PATIENT
  Sex: Female

DRUGS (1)
  1. IBUPROFEN+PSEUDOEPHEDRINE HYDROCHLORIDE CAPSULES (OTC) 200/30MG [Suspect]
     Active Substance: IBUPROFEN\PSEUDOEPHEDRINE HYDROCHLORIDE
     Indication: PRODUCT USED FOR UNKNOWN INDICATION
     Dosage: UNK
     Route: 048

REACTIONS (2)
  - Taste disorder [Unknown]
  - Accidental exposure to product [Unknown]
